FAERS Safety Report 16843901 (Version 1)
Quarter: 2019Q3

REPORT INFORMATION
  Report Type: Spontaneous
  Country: NL (occurrence: NL)
  Receive Date: 20190924
  Receipt Date: 20190924
  Transmission Date: 20191005
  Serious: Yes (Other)
  Sender: FDA-Public Use
  Company Number: NL-PFIZER INC-2019408045

PATIENT
  Age: 61 Year
  Sex: Female

DRUGS (1)
  1. PANTOPRAZOLE [Suspect]
     Active Substance: PANTOPRAZOLE
     Indication: COUGH
     Dosage: 40 MILLIGRAM, QD
     Route: 048
     Dates: start: 20190904, end: 20190905

REACTIONS (5)
  - Anal haemorrhage [Recovered/Resolved]
  - Ocular hyperaemia [Recovered/Resolved]
  - Vaginal haemorrhage [Recovered/Resolved]
  - Off label use [Unknown]
  - Product use in unapproved indication [Unknown]

NARRATIVE: CASE EVENT DATE: 20190904
